FAERS Safety Report 23360442 (Version 2)
Quarter: 2024Q1

REPORT INFORMATION
  Report Type: Spontaneous
  Country: US (occurrence: US)
  Receive Date: 20240103
  Receipt Date: 20240220
  Transmission Date: 20240410
  Serious: Yes (Hospitalization, Other)
  Sender: FDA-Public Use
  Company Number: US-ALEMBIC PHARMACUETICALS LIMITED-2023SCAL001281

PATIENT

DRUGS (1)
  1. FLUOROURACIL [Suspect]
     Active Substance: FLUOROURACIL
     Indication: Oesophageal adenocarcinoma
     Dosage: UNK
     Route: 065

REACTIONS (11)
  - Cardiogenic shock [Recovering/Resolving]
  - Ejection fraction decreased [Unknown]
  - Troponin increased [Unknown]
  - Pulmonary arterial wedge pressure increased [Unknown]
  - Cardiac index decreased [Unknown]
  - Pulmonary arterial pressure increased [Unknown]
  - Toxicity to various agents [Unknown]
  - Cardiotoxicity [Unknown]
  - Electrocardiogram ST segment depression [Unknown]
  - Chest pain [Unknown]
  - Arteriospasm coronary [Unknown]
